FAERS Safety Report 9824814 (Version 1)
Quarter: 2014Q1

REPORT INFORMATION
  Report Type: Spontaneous
  Country: US (occurrence: US)
  Receive Date: 20140117
  Receipt Date: 20140117
  Transmission Date: 20141002
  Serious: No
  Sender: FDA-Public Use
  Company Number: US-BIOGENIDEC-2014BI004524

PATIENT
  Sex: Male

DRUGS (1)
  1. TYSABRI [Suspect]
     Indication: CROHN^S DISEASE
     Route: 042
     Dates: start: 20121221, end: 20131101

REACTIONS (5)
  - Crohn^s disease [Not Recovered/Not Resolved]
  - Micturition urgency [Not Recovered/Not Resolved]
  - Pollakiuria [Not Recovered/Not Resolved]
  - Pain [Not Recovered/Not Resolved]
  - Muscle spasms [Not Recovered/Not Resolved]
